FAERS Safety Report 20053497 (Version 1)
Quarter: 2021Q4

REPORT INFORMATION
  Report Type: Spontaneous
  Country: US (occurrence: None)
  Receive Date: 20211110
  Receipt Date: 20211110
  Transmission Date: 20220303
  Serious: No
  Sender: FDA-Public Use
  Company Number: 2021A769713

PATIENT
  Age: 48 Year
  Sex: Female
  Weight: 69.4 kg

DRUGS (1)
  1. BUDESONIDE\FORMOTEROL\GLYCOPYRRONIUM [Suspect]
     Active Substance: BUDESONIDE\FORMOTEROL\GLYCOPYRRONIUM
     Indication: Asthma
     Dosage: 160MCG/9MCG/4.8MCG, 2 PUFFS, DAILY IN THE MORNING
     Route: 055
     Dates: start: 20201212, end: 20211009

REACTIONS (4)
  - Heart rate irregular [Not Recovered/Not Resolved]
  - Stress [Unknown]
  - Chest pain [Not Recovered/Not Resolved]
  - Product use issue [Unknown]

NARRATIVE: CASE EVENT DATE: 20210101
